FAERS Safety Report 20930348 (Version 2)
Quarter: 2022Q3

REPORT INFORMATION
  Report Type: Spontaneous
  Country: BR (occurrence: BR)
  Receive Date: 20220608
  Receipt Date: 20220722
  Transmission Date: 20221027
  Serious: No
  Sender: FDA-Public Use
  Company Number: BR-LUPIN PHARMACEUTICALS INC.-2022-08478

PATIENT
  Age: 68 Year
  Sex: Female

DRUGS (1)
  1. PREGABALIN [Suspect]
     Active Substance: PREGABALIN
     Indication: Intervertebral disc protrusion
     Dosage: 75 MG, QD
     Route: 048
     Dates: start: 202201

REACTIONS (3)
  - Dizziness [Unknown]
  - Visual impairment [Unknown]
  - Product quality issue [Unknown]

NARRATIVE: CASE EVENT DATE: 20220520
